FAERS Safety Report 5598291-7 (Version None)
Quarter: 2008Q1

REPORT INFORMATION
  Report Type: 
  Country: None (occurrence: None)
  Receive Date: 20080122
  Receipt Date: 20080114
  Transmission Date: 20080703
  Serious: Yes (Hospitalization)
  Sender: FDA-Public Use
  Company Number: FR-AVENTIS-200810243FR

PATIENT
  Age: 73 Year
  Sex: Male

DRUGS (8)
  1. LASILIX                            /00032601/ [Suspect]
     Indication: CARDIAC FAILURE
     Route: 042
  2. LASILIX                            /00032601/ [Suspect]
     Route: 042
     Dates: start: 20071001
  3. ALDACTONE [Suspect]
     Indication: CARDIAC FAILURE
     Route: 048
  4. PREVISCAN                          /00789001/ [Concomitant]
     Route: 048
  5. CARVEDILOL [Concomitant]
  6. ACUITEL                            /00810601/ [Concomitant]
  7. CORDARONE [Concomitant]
  8. TAHOR [Concomitant]

REACTIONS (1)
  - RENAL FAILURE ACUTE [None]
